FAERS Safety Report 5296230-X (Version None)
Quarter: 2007Q2

REPORT INFORMATION
  Report Type: 
  Country: None (occurrence: None)
  Receive Date: 20070413
  Receipt Date: 20070403
  Transmission Date: 20071010
  Serious: Yes (Other)
  Sender: FDA-Public Use
  Company Number: GR-GLAXOSMITHKLINE-B0465886A

PATIENT
  Age: 23 Year
  Sex: Female

DRUGS (7)
  1. SALBUTAMOL [Suspect]
     Indication: TOCOLYSIS
     Dosage: 4MG THREE TIMES PER DAY
     Route: 048
  2. AMOXICILLIN + CLAVULANIC ACID [Suspect]
     Indication: INFECTION PROPHYLAXIS
     Route: 042
  3. TICARCILLIN + CLAVULANIC ACID [Suspect]
     Indication: INFECTION PROPHYLAXIS
     Dosage: 3.2MG THREE TIMES PER DAY
     Route: 042
  4. BETAMETHASONE [Suspect]
     Dosage: 12MG SEE DOSAGE TEXT
     Route: 030
  5. METRONIDAZOLE [Suspect]
     Indication: INFECTION PROPHYLAXIS
     Dosage: 500MG THREE TIMES PER DAY
     Route: 042
  6. ENOXAPARIN SODIUM [Suspect]
     Dosage: 40MG PER DAY
     Route: 058
  7. INSULIN [Suspect]
     Indication: GESTATIONAL DIABETES
     Route: 065

REACTIONS (5)
  - CAESAREAN SECTION [None]
  - DRUG EXPOSURE DURING PREGNANCY [None]
  - GESTATIONAL DIABETES [None]
  - PREMATURE BABY [None]
  - PREMATURE RUPTURE OF MEMBRANES [None]
